FAERS Safety Report 10569439 (Version 2)
Quarter: 2014Q4

REPORT INFORMATION
  Report Type: Report from Study
  Country: US (occurrence: US)
  Receive Date: 20141106
  Receipt Date: 20141208
  Transmission Date: 20150529
  Serious: Yes (Other)
  Sender: FDA-Public Use
  Company Number: US-GILEAD-2014-0121372

PATIENT
  Age: 88 Year
  Sex: Male

DRUGS (2)
  1. IDELALISIB [Suspect]
     Active Substance: IDELALISIB
     Indication: LYMPHOMA
  2. IDELALISIB [Suspect]
     Active Substance: IDELALISIB
     Indication: PROSTATE CANCER
     Dosage: 150 MG, BID
     Route: 048
     Dates: start: 20141001

REACTIONS (8)
  - Haemorrhagic diathesis [Unknown]
  - Diarrhoea [Recovered/Resolved]
  - Balance disorder [Unknown]
  - Skin discolouration [Unknown]
  - Skin cancer [Unknown]
  - Rash [Unknown]
  - Faeces pale [Unknown]
  - Increased tendency to bruise [Unknown]
